FAERS Safety Report 7563681-X (Version None)
Quarter: 2011Q2

REPORT INFORMATION
  Report Type: 
  Country: None (occurrence: None)
  Receive Date: 20110622
  Receipt Date: 20110614
  Transmission Date: 20111010
  Serious: Yes (Other)
  Sender: FDA-Public Use
  Company Number: DE-ROCHE-784367

PATIENT
  Sex: Male
  Weight: 88 kg

DRUGS (3)
  1. ANTIHYPERTENSIVE NOS [Concomitant]
     Indication: HYPERTENSION
  2. PEGINTERFERON ALFA-2A [Suspect]
     Route: 058
     Dates: start: 20110506
  3. RIBAVIRIN [Suspect]
     Route: 048

REACTIONS (1)
  - HYPERTENSIVE CRISIS [None]
